FAERS Safety Report 11112286 (Version 1)
Quarter: 2015Q2

REPORT INFORMATION
  Report Type: Spontaneous
  Country: US (occurrence: None)
  Receive Date: 20150513
  Receipt Date: 20150513
  Transmission Date: 20150821
  Serious: Yes (Other)
  Sender: FDA-Public Use
  Company Number: None

PATIENT
  Age: 42 Year
  Sex: Female
  Weight: 68.04 kg

DRUGS (4)
  1. NAPROXEN. [Concomitant]
     Active Substance: NAPROXEN
  2. ALPRAZOLAM. [Concomitant]
     Active Substance: ALPRAZOLAM
  3. BLACK RADIANCE TRUE COMPLEXION BB CREAM SPF 15 [Suspect]
     Active Substance: HOMOSALATE\OCTISALATE\OCTOCRYLENE
     Indication: ILL-DEFINED DISORDER
     Dates: start: 20150301, end: 20150415
  4. NORTRIPTYLINE [Concomitant]
     Active Substance: NORTRIPTYLINE

REACTIONS (2)
  - Product tampering [None]
  - Lipodystrophy acquired [None]

NARRATIVE: CASE EVENT DATE: 20150305
